FAERS Safety Report 8417029-9 (Version None)
Quarter: 2012Q2

REPORT INFORMATION
  Report Type: 
  Country: None (occurrence: None)
  Receive Date: 20120606
  Receipt Date: 20120529
  Transmission Date: 20120825
  Serious: Yes (Hospitalization, Other)
  Sender: FDA-Public Use
  Company Number: DE-JNJFOC-20120600589

PATIENT
  Sex: Male

DRUGS (6)
  1. TORSEMIDE [Concomitant]
  2. XARELTO [Suspect]
     Indication: CEREBROVASCULAR ACCIDENT PROPHYLAXIS
     Route: 048
  3. XARELTO [Suspect]
     Indication: ATRIAL FIBRILLATION
     Route: 048
  4. NEBIVOLOL [Concomitant]
     Indication: ATRIAL FIBRILLATION
  5. PANTOPRAZOLE [Concomitant]
     Indication: GASTRITIS
  6. CALCIMAGON [Concomitant]

REACTIONS (1)
  - GASTRIC ULCER [None]
